FAERS Safety Report 5223952-9 (Version None)
Quarter: 2007Q1

REPORT INFORMATION
  Report Type: 
  Country: None (occurrence: None)
  Receive Date: 20070130
  Receipt Date: 20070126
  Transmission Date: 20070707
  Serious: Yes (Hospitalization)
  Sender: FDA-Public Use
  Company Number: US-GLAXOSMITHKLINE-A0635983A

PATIENT
  Age: 40 Year
  Sex: Female

DRUGS (12)
  1. AVANDIA [Suspect]
     Dosage: 4MG TWICE PER DAY
     Route: 048
     Dates: start: 20050101
  2. VYTORIN [Concomitant]
  3. TRICOR [Concomitant]
  4. LASIX [Concomitant]
  5. DIOVAN [Concomitant]
  6. PREVACID [Concomitant]
  7. LAMISIL [Concomitant]
  8. POTASSIUM ACETATE [Concomitant]
  9. METFORMIN HCL [Concomitant]
  10. TARKA [Concomitant]
  11. BYETTA [Concomitant]
  12. LANTUS [Concomitant]

REACTIONS (4)
  - FLUID RETENTION [None]
  - OEDEMA PERIPHERAL [None]
  - SKIN ULCER [None]
  - WEIGHT INCREASED [None]
